FAERS Safety Report 22659953 (Version 1)
Quarter: 2023Q2

REPORT INFORMATION
  Report Type: Spontaneous
  Country: US (occurrence: US)
  Receive Date: 20230630
  Receipt Date: 20230630
  Transmission Date: 20230722
  Serious: Yes (Hospitalization, Other)
  Sender: FDA-Public Use
  Company Number: None

PATIENT

DRUGS (6)
  1. DOXYCYCLINE [Suspect]
     Active Substance: DOXYCYCLINE
     Indication: Infection prophylaxis
     Dosage: 1 DOSAGE FORM
     Route: 065
  2. CILOSTAZOL [Concomitant]
     Active Substance: CILOSTAZOL
     Indication: Product used for unknown indication
     Route: 065
  3. ASPIRIN [Concomitant]
     Active Substance: ASPIRIN
     Indication: Product used for unknown indication
     Route: 065
  4. METOPROLOL [Concomitant]
     Active Substance: METOPROLOL
     Indication: Product used for unknown indication
     Route: 065
  5. SIMVASTATIN [Concomitant]
     Active Substance: SIMVASTATIN
     Indication: Product used for unknown indication
     Route: 065
  6. CLOPIDOGREL [Concomitant]
     Active Substance: CLOPIDOGREL BISULFATE
     Indication: Product used for unknown indication
     Route: 065

REACTIONS (10)
  - Photosensitivity reaction [Recovering/Resolving]
  - Pemphigoid [Recovering/Resolving]
  - Rash pruritic [Recovering/Resolving]
  - Rash vesicular [Recovering/Resolving]
  - Rash erythematous [Recovering/Resolving]
  - Skin erosion [Recovering/Resolving]
  - Scab [Recovering/Resolving]
  - Skin weeping [Recovering/Resolving]
  - Rash [Recovering/Resolving]
  - Intentional product use issue [Recovered/Resolved]
